FAERS Safety Report 5910970-8 (Version None)
Quarter: 2008Q4

REPORT INFORMATION
  Report Type: 
  Country: None (occurrence: None)
  Receive Date: 20081003
  Receipt Date: 20081003
  Transmission Date: 20090506
  Serious: Yes (Other)
  Sender: FDA-Public Use
  Company Number: None

PATIENT
  Age: 50 Year
  Sex: Female
  Weight: 79.3795 kg

DRUGS (1)
  1. KEPPRA [Suspect]
     Indication: CONVULSION
     Dosage: 100 MG TWICE DAILY PO
     Route: 048
     Dates: start: 20060210, end: 20070914

REACTIONS (2)
  - DEPRESSION [None]
  - SUICIDAL IDEATION [None]
